FAERS Safety Report 9981222 (Version 3)
Quarter: 2014Q1

REPORT INFORMATION
  Report Type: Report from Study
  Country: US (occurrence: US)
  Receive Date: 20140307
  Receipt Date: 20140320
  Transmission Date: 20141002
  Serious: Yes (Hospitalization, Other)
  Sender: FDA-Public Use
  Company Number: US-BAYER-2014-006773

PATIENT
  Age: 50 Year
  Sex: Female

DRUGS (3)
  1. ADEMPAS [Suspect]
     Indication: PULMONARY ARTERIAL HYPERTENSION
     Dosage: 1 MG, TID
     Route: 048
     Dates: start: 20131218
  2. ADEMPAS [Suspect]
     Indication: PULMONARY ARTERIAL HYPERTENSION
     Dosage: 1.5 MG, TID
     Route: 048
  3. ADEMPAS [Suspect]
     Indication: PULMONARY ARTERIAL HYPERTENSION
     Dosage: 1.5 MG, TID
     Route: 048
     Dates: start: 20131219

REACTIONS (14)
  - Dyspnoea exertional [None]
  - Constipation [None]
  - Chest pain [None]
  - Dysphonia [None]
  - Dizziness [None]
  - Palpitations [None]
  - Heart rate increased [None]
  - Fatigue [None]
  - Oedema peripheral [None]
  - Cough [None]
  - Flushing [None]
  - Headache [None]
  - Chest pain [None]
  - Palpitations [None]
